FAERS Safety Report 19513801 (Version 1)
Quarter: 2021Q3

REPORT INFORMATION
  Report Type: Report from Study
  Country: US (occurrence: US)
  Receive Date: 20210710
  Receipt Date: 20210710
  Transmission Date: 20211014
  Serious: No
  Sender: FDA-Public Use
  Company Number: NVSC2021US146433

PATIENT
  Sex: Male

DRUGS (1)
  1. COSENTYX [Suspect]
     Active Substance: SECUKINUMAB
     Indication: ANKYLOSING SPONDYLITIS
     Dosage: 150 MG (150MG Q WEEKLY X 5 WEEKS THEN 150 MG Q4 WEEKS)
     Route: 058
     Dates: start: 202104

REACTIONS (1)
  - Rash [Unknown]
